FAERS Safety Report 8837013 (Version 1)
Quarter: 2012Q4

REPORT INFORMATION
  Report Type: Spontaneous
  Country: US (occurrence: None)
  Receive Date: 20121011
  Receipt Date: 20121011
  Transmission Date: 20130627
  Serious: Yes (Hospitalization)
  Sender: FDA-Public Use
  Company Number: None

PATIENT
  Age: 77 Year
  Sex: Female
  Weight: 99 kg

DRUGS (16)
  1. NAPROXEN [Suspect]
     Indication: PAIN
     Dosage: po
     Route: 048
  2. LOSARTAN [Suspect]
     Indication: HYPERTENSION
     Dosage: 100 mg daily po
     Route: 048
  3. SIMVASTATIN [Concomitant]
  4. PANTOPRAZOLE [Concomitant]
  5. ONDANSETRON [Concomitant]
  6. MIRTAZAPINE [Concomitant]
  7. LOSARTAN [Concomitant]
  8. CLOPIDOGREL [Concomitant]
  9. ERGOCALCIFEROL [Concomitant]
  10. FERROUS SULFATE [Concomitant]
  11. FLUTICASONE/SALMETEROL [Concomitant]
  12. FUROSEMIDE [Concomitant]
  13. GLIMEPIRIDE [Concomitant]
  14. HYDRALAZINE [Concomitant]
  15. ISOSORBIDE MONONITRATE [Concomitant]
  16. OLOPATADINE OPHTHALMIC SOLN [Concomitant]

REACTIONS (5)
  - Renal failure acute [None]
  - Hyperkalaemia [None]
  - Hypovolaemia [None]
  - Asthenia [None]
  - Asthenia [None]
